FAERS Safety Report 21370874 (Version 1)
Quarter: 2022Q3

REPORT INFORMATION
  Report Type: Spontaneous
  Country: US (occurrence: US)
  Receive Date: 20220923
  Receipt Date: 20220923
  Transmission Date: 20221027
  Serious: No
  Sender: FDA-Public Use
  Company Number: US-SA-SAC20220919000562

PATIENT
  Age: 51 Year
  Sex: Female

DRUGS (3)
  1. DUPIXENT [Suspect]
     Active Substance: DUPILUMAB
     Indication: Eczema
     Dosage: 300 MG, QOW
     Route: 058
     Dates: start: 20201016
  2. OPZELURA [Concomitant]
     Active Substance: RUXOLITINIB PHOSPHATE
  3. CYCLOSPORINE [Concomitant]
     Active Substance: CYCLOSPORINE

REACTIONS (5)
  - Conjunctivitis [Unknown]
  - Weight increased [Unknown]
  - Arthralgia [Unknown]
  - Eye disorder [Unknown]
  - Condition aggravated [Unknown]
